FAERS Safety Report 7509404-1 (Version None)
Quarter: 2011Q2

REPORT INFORMATION
  Report Type: 
  Country: None (occurrence: None)
  Receive Date: 20110527
  Receipt Date: 20110515
  Transmission Date: 20111010
  Serious: Yes (Other)
  Sender: FDA-Public Use
  Company Number: US-BAYER-2011-043554

PATIENT
  Sex: Male

DRUGS (1)
  1. ALEVE (CAPLET) [Suspect]
     Indication: BACK PAIN
     Route: 048

REACTIONS (7)
  - NAUSEA [None]
  - DRY MOUTH [None]
  - HEADACHE [None]
  - CHROMATURIA [None]
  - DRY THROAT [None]
  - WHEEZING [None]
  - CHEST DISCOMFORT [None]
